FAERS Safety Report 5535858-6 (Version None)
Quarter: 2007Q4

REPORT INFORMATION
  Report Type: 
  Country: None (occurrence: None)
  Receive Date: 20071206
  Receipt Date: 20071127
  Transmission Date: 20080405
  Serious: Yes (Other)
  Sender: FDA-Public Use
  Company Number: US-JNJFOC-20071110201

PATIENT
  Sex: Female
  Weight: 88.45 kg

DRUGS (5)
  1. FENTANYL TRANSDERMAL SYSTEM [Suspect]
     Indication: PAIN
     Route: 062
  2. CHOLESTEROL MEDICATION [Concomitant]
     Indication: BLOOD CHOLESTEROL INCREASED
     Route: 048
  3. PERCOCET [Concomitant]
     Indication: PAIN
     Dosage: 10/650 MG
     Route: 048
  4. NEXIUM [Concomitant]
     Indication: GASTROOESOPHAGEAL REFLUX DISEASE
     Route: 048
  5. IMURAN [Concomitant]
     Indication: CROHN'S DISEASE
     Dosage: 2 IN THE MORNING, 2 IN THE EVENING
     Route: 048

REACTIONS (3)
  - NEURALGIA [None]
  - PANCREATITIS [None]
  - WRONG TECHNIQUE IN DRUG USAGE PROCESS [None]
